FAERS Safety Report 5030880-0 (Version None)
Quarter: 2006Q2

REPORT INFORMATION
  Report Type: 
  Country: None (occurrence: None)
  Receive Date: 20060503
  Receipt Date: 20060130
  Transmission Date: 20061013
  Serious: No
  Sender: FDA-Public Use
  Company Number: FACT0600050

PATIENT
  Age: 51 Year
  Sex: Female
  Weight: 99.8 kg

DRUGS (3)
  1. FACTIVE [Suspect]
     Indication: RESPIRATORY TRACT INFECTION BACTERIAL
     Dosage: 320 MG, QD, ORAL
     Route: 048
     Dates: start: 20060121, end: 20060125
  2. DEXTROMETHORPHAN W/GUAIFENESIN/PSEUDOEPHEDRIN(DEXTROMETHORPHAN, GUAIFE [Suspect]
     Dosage: BID, ORAL
     Route: 048
     Dates: start: 20060121, end: 20060127
  3. FLONASE (FLUTICASONE PROPIONATE) SPRAY (EXCEPT INHALATION) [Suspect]
     Dosage: 2 UNK, QD, NASAL
     Route: 045
     Dates: start: 20060125, end: 20060127

REACTIONS (5)
  - CHROMATURIA [None]
  - DRY MOUTH [None]
  - MUSCLE SPASMS [None]
  - RASH GENERALISED [None]
  - VOMITING [None]
